FAERS Safety Report 7172354-7 (Version None)
Quarter: 2010Q4

REPORT INFORMATION
  Report Type: 
  Country: None (occurrence: None)
  Receive Date: 20101217
  Receipt Date: 20100207
  Transmission Date: 20110411
  Serious: No
  Sender: FDA-Public Use
  Company Number: US-AMGEN-KDL391066

PATIENT

DRUGS (11)
  1. ENBREL [Suspect]
     Indication: RHEUMATOID ARTHRITIS
     Dosage: 50 MG, QWK
     Route: 058
  2. PREDNISONE [Concomitant]
     Dosage: 3 MG, QD
  3. HYDROXYCHLOROQUINE SULFATE [Concomitant]
     Dosage: UNK UNK, UNK
  4. ACETAMINOPHEN [Concomitant]
     Dosage: UNK UNK, UNK
  5. TRAMADOL HCL [Concomitant]
     Dosage: UNK UNK, UNK
  6. NORTRIPTYLINE [Concomitant]
     Dosage: UNK UNK, UNK
  7. OMEPRAZOLE [Concomitant]
     Dosage: UNK UNK, UNK
  8. METOPROLOL [Concomitant]
     Dosage: UNK UNK, UNK
  9. CALCIUM [Concomitant]
     Dosage: UNK UNK, UNK
  10. VITAMIN C AND E [Concomitant]
     Dosage: UNK UNK, UNK
  11. ERGOCALCIFEROL [Concomitant]

REACTIONS (1)
  - ARTHRALGIA [None]
